FAERS Safety Report 5345425-5 (Version None)
Quarter: 2007Q2

REPORT INFORMATION
  Report Type: 
  Country: None (occurrence: None)
  Receive Date: 20070601
  Receipt Date: 20070518
  Transmission Date: 20071010
  Serious: Yes (Hospitalization)
  Sender: FDA-Public Use
  Company Number: 2007S1003342

PATIENT
  Age: 80 Year
  Sex: Female

DRUGS (5)
  1. BUTORPHANOL TARTRATE [Suspect]
     Indication: PRURITUS
     Dosage: 1 MG; AS NEEDED; NASAL
     Route: 045
     Dates: start: 20070318, end: 20070318
  2. LABETALOL HYDROCHLORIDE [Concomitant]
  3. ACETYLSALICYLIC ACID SRT [Concomitant]
  4. DOCUSATE SODIUM [Concomitant]
  5. METHYLCELLULOSE [Concomitant]

REACTIONS (17)
  - ANXIETY [None]
  - ASTHENIA [None]
  - CONFUSIONAL STATE [None]
  - DIZZINESS [None]
  - DRY MOUTH [None]
  - DYSPNOEA [None]
  - EYELID FUNCTION DISORDER [None]
  - FATIGUE [None]
  - FEELING ABNORMAL [None]
  - GAIT DISTURBANCE [None]
  - HEADACHE [None]
  - HEART RATE INCREASED [None]
  - HYPERTENSION [None]
  - HYPOVENTILATION [None]
  - MUSCULAR WEAKNESS [None]
  - NAUSEA [None]
  - VISION BLURRED [None]
